FAERS Safety Report 4641571-X (Version None)
Quarter: 2005Q2

REPORT INFORMATION
  Report Type: 
  Country: None (occurrence: None)
  Receive Date: 20050420
  Receipt Date: 20050404
  Transmission Date: 20051028
  Serious: Yes (Hospitalization, Other)
  Sender: FDA-Public Use
  Company Number: USA050494809

PATIENT
  Age: 60 Year
  Sex: Female

DRUGS (9)
  1. FORTEO [Suspect]
     Indication: OSTEOPOROSIS
     Dosage: 20 UG/1 DAY
  2. PSEUDOEPHEDRINE HCL [Concomitant]
  3. LEVOXYL [Concomitant]
  4. LORTAB [Concomitant]
  5. XANAX (ALPRAZOLAM DUM) [Concomitant]
  6. VITAMIN C [Concomitant]
  7. VITAMIN E [Concomitant]
  8. MULTI-VITAMIN [Concomitant]
  9. TUMS (CALCIUM CARBONATE) [Concomitant]

REACTIONS (7)
  - CERVICAL VERTEBRAL FRACTURE [None]
  - DIZZINESS [None]
  - FALL [None]
  - HEAD INJURY [None]
  - LOSS OF CONSCIOUSNESS [None]
  - PHARMACEUTICAL PRODUCT COMPLAINT [None]
  - TOOTH FRACTURE [None]
